FAERS Safety Report 6022384-3 (Version None)
Quarter: 2008Q4

REPORT INFORMATION
  Report Type: 
  Country: None (occurrence: None)
  Receive Date: 20081230
  Receipt Date: 20081219
  Transmission Date: 20090506
  Serious: Yes (Other)
  Sender: FDA-Public Use
  Company Number: CA-JNJFOC-20081205960

PATIENT
  Age: 48 Year
  Sex: Female
  Weight: 46 kg

DRUGS (4)
  1. REMICADE [Suspect]
     Indication: CROHN'S DISEASE
     Route: 042
  2. METHOTREXATE [Concomitant]
  3. ENTOCORT EC [Concomitant]
  4. PENTASA [Concomitant]

REACTIONS (1)
  - COLON NEOPLASM [None]
